FAERS Safety Report 5605949-X (Version None)
Quarter: 2008Q1

REPORT INFORMATION
  Report Type: 
  Country: None (occurrence: None)
  Receive Date: 20080129
  Receipt Date: 20080124
  Transmission Date: 20080703
  Serious: Yes (Death, Hospitalization)
  Sender: FDA-Public Use
  Company Number: US-BRISTOL-MYERS SQUIBB COMPANY-14023097

PATIENT
  Age: 59 Year
  Sex: Male
  Weight: 85 kg

DRUGS (4)
  1. IXEMPRA [Suspect]
     Indication: PROSTATE CANCER
     Dosage: FREQUENCY: 3 HRS ON DAY 1.
     Route: 042
     Dates: start: 20071108, end: 20071108
  2. MITOXANTRONE HCL [Suspect]
     Indication: PROSTATE CANCER
     Dosage: FREQUENCY: 30MINUTES ON DAY 1.
     Route: 042
     Dates: start: 20071108, end: 20071108
  3. PREDNISONE TAB [Suspect]
     Indication: PROSTATE CANCER
     Dosage: ADMINISTERED ON DAYS 1 TO 21.
     Route: 048
     Dates: start: 20071108, end: 20071115
  4. PEGFILGRASTIM [Concomitant]
     Dosage: ADMINISTERED ON DAY 2.
     Route: 058
     Dates: start: 20071109, end: 20071109

REACTIONS (8)
  - ACUTE RESPIRATORY DISTRESS SYNDROME [None]
  - ANAEMIA [None]
  - CARDIO-RESPIRATORY ARREST [None]
  - FEBRILE NEUTROPENIA [None]
  - HYPOCALCAEMIA [None]
  - HYPOKALAEMIA [None]
  - PROSTATE INFECTION [None]
  - RENAL FAILURE [None]
